FAERS Safety Report 10288406 (Version 2)
Quarter: 2014Q3

REPORT INFORMATION
  Report Type: Spontaneous
  Country: GB (occurrence: GB)
  Receive Date: 20140709
  Receipt Date: 20140716
  Transmission Date: 20150326
  Serious: Yes (Other)
  Sender: FDA-Public Use
  Company Number: GB-PFIZER INC-2014189369

PATIENT
  Age: 4 Decade
  Sex: Female

DRUGS (1)
  1. CYTOTEC [Suspect]
     Active Substance: MISOPROSTOL
     Dosage: UNK

REACTIONS (3)
  - Cardiac arrest [Unknown]
  - Convulsion [Unknown]
  - Tremor [Unknown]
